FAERS Safety Report 10349210 (Version 5)
Quarter: 2014Q3

REPORT INFORMATION
  Report Type: Spontaneous
  Country: US (occurrence: US)
  Receive Date: 20140730
  Receipt Date: 20140916
  Transmission Date: 20150326
  Serious: Yes (Other)
  Sender: FDA-Public Use
  Company Number: US-BEH-2014043595

PATIENT
  Age: 67 Year
  Sex: Male

DRUGS (2)
  1. IVIG [Suspect]
     Active Substance: HUMAN IMMUNOGLOBULIN G
     Indication: IMMUNE THROMBOCYTOPENIC PURPURA
  2. ASPIRIN. [Concomitant]
     Active Substance: ASPIRIN
     Indication: ACUTE MYOCARDIAL INFARCTION

REACTIONS (7)
  - Hyperhidrosis [Recovered/Resolved]
  - Troponin increased [Recovered/Resolved]
  - Dyspnoea [Recovered/Resolved]
  - Drug ineffective [Recovered/Resolved]
  - Acute myocardial infarction [Recovered/Resolved]
  - Electrocardiogram ST segment depression [Recovered/Resolved]
  - Chest pain [Recovered/Resolved]
